FAERS Safety Report 5008959-9 (Version None)
Quarter: 2006Q2

REPORT INFORMATION
  Report Type: 
  Country: None (occurrence: None)
  Receive Date: 20060523
  Receipt Date: 20051025
  Transmission Date: 20061013
  Serious: Yes (Hospitalization)
  Sender: FDA-Public Use
  Company Number: 2005SE06110

PATIENT
  Age: 26047 Day
  Sex: Female

DRUGS (8)
  1. ATACAND [Suspect]
     Indication: CARDIAC FAILURE
     Route: 048
     Dates: start: 20050420
  2. ROSUVASTATIN CODE NOT BROKEN [Suspect]
     Indication: CARDIAC FAILURE CHRONIC
     Route: 048
     Dates: start: 20041019
  3. WARAN [Concomitant]
     Indication: ATRIAL FIBRILLATION
     Route: 048
  4. CORDARONE [Concomitant]
     Indication: ATRIAL FIBRILLATION
     Route: 048
  5. EMCONCOR [Concomitant]
     Indication: CARDIAC FAILURE
     Route: 048
     Dates: start: 20040714
  6. IMOVANE [Concomitant]
     Indication: INSOMNIA
     Route: 048
  7. FURIX [Concomitant]
     Indication: CARDIAC FAILURE
     Route: 048
     Dates: end: 20051005
  8. FURIX [Concomitant]
     Route: 048
     Dates: start: 20041006

REACTIONS (2)
  - HYPOTENSION [None]
  - VERTIGO [None]
